FAERS Safety Report 24388616 (Version 1)
Quarter: 2024Q4

REPORT INFORMATION
  Report Type: Spontaneous
  Country: DE (occurrence: DE)
  Receive Date: 20241002
  Receipt Date: 20241002
  Transmission Date: 20250115
  Serious: Yes (Other)
  Sender: VIIV
  Company Number: None

PATIENT

DRUGS (5)
  1. DOLUTEGRAVIR [Suspect]
     Active Substance: DOLUTEGRAVIR
     Indication: HIV infection
     Dosage: UNK
     Route: 065
     Dates: start: 201412
  2. CISPLATIN [Suspect]
     Active Substance: CISPLATIN
     Indication: Squamous cell carcinoma
     Dosage: 20 MG/M2
     Route: 065
  3. CISPLATIN [Suspect]
     Active Substance: CISPLATIN
     Dosage: 80 MG/M2
     Route: 065
     Dates: start: 20150209
  4. PREZISTA [Suspect]
     Active Substance: DARUNAVIR ETHANOLATE
     Indication: HIV infection
     Dosage: UNK
     Route: 048
     Dates: start: 201412
  5. VINORELBINE [Suspect]
     Active Substance: VINORELBINE TARTRATE
     Indication: Squamous cell carcinoma
     Dosage: 30 MG/M2
     Route: 065
     Dates: start: 20150209

REACTIONS (6)
  - Squamous cell carcinoma [Unknown]
  - Neutropenic sepsis [Unknown]
  - Mucosal inflammation [Unknown]
  - Cellulitis [Unknown]
  - Stomatitis [Unknown]
  - Candida infection [Unknown]

NARRATIVE: CASE EVENT DATE: 20150227
